FAERS Safety Report 20486004 (Version 2)
Quarter: 2022Q1

REPORT INFORMATION
  Report Type: Other
  Country: US (occurrence: None)
  Receive Date: 20220217
  Receipt Date: 20220223
  Transmission Date: 20220423
  Serious: Yes (Hospitalization)
  Sender: FDA-Public Use
  Company Number: US-ROCHE-3029128

PATIENT
  Age: 68 Year
  Sex: Male

DRUGS (5)
  1. RITUXIMAB [Suspect]
     Active Substance: RITUXIMAB
     Indication: Interstitial lung disease
     Route: 065
  2. MODERNA COVID-19 VACCINE [Suspect]
     Active Substance: ELASOMERAN
     Indication: COVID-19
     Dosage: 2 DOSES
     Route: 065
  3. MYCOPHENOLATE SODIUM [Concomitant]
     Active Substance: MYCOPHENOLATE SODIUM
     Indication: Interstitial lung disease
  4. NINTEDANIB [Concomitant]
     Active Substance: NINTEDANIB
     Indication: Interstitial lung disease
  5. PREDNISONE [Concomitant]
     Active Substance: PREDNISONE
     Indication: Interstitial lung disease

REACTIONS (3)
  - COVID-19 pneumonia [Unknown]
  - SARS-CoV-2 antibody test negative [Unknown]
  - Drug interaction [Unknown]
